FAERS Safety Report 11428056 (Version 1)
Quarter: 2015Q3

REPORT INFORMATION
  Report Type: Spontaneous
  Country: US (occurrence: None)
  Receive Date: 20150827
  Receipt Date: 20150827
  Transmission Date: 20151125
  Serious: No
  Sender: FDA-Public Use
  Company Number: None

PATIENT
  Age: 78 Year
  Sex: Female
  Weight: 42.64 kg

DRUGS (6)
  1. LORAZEPAM 0.5 MG TABLET TABLET BROKEN IN HALF MTS MEDICATION TECHNOLOGIES [Suspect]
     Active Substance: LORAZEPAM
     Indication: ANXIETY
     Dosage: 0.5 MG?1/2 TAB EVERY 4 HOURS?MOUTH?THERAPY?AUG 5?AUG 6
     Route: 048
     Dates: start: 20150805, end: 20150806
  2. TOPROL XL [Concomitant]
     Active Substance: METOPROLOL SUCCINATE
  3. VITAMIN B12 [Concomitant]
     Active Substance: CYANOCOBALAMIN
  4. CLONAZEPAM. [Concomitant]
     Active Substance: CLONAZEPAM
  5. MIRTAZAPINE. [Concomitant]
     Active Substance: MIRTAZAPINE
  6. VITAMIN [Concomitant]
     Active Substance: VITAMINS

REACTIONS (1)
  - Drug withdrawal syndrome [None]

NARRATIVE: CASE EVENT DATE: 20150804
